APPROVED DRUG PRODUCT: HYDROXYZINE HYDROCHLORIDE
Active Ingredient: HYDROXYZINE HYDROCHLORIDE
Strength: 10MG
Dosage Form/Route: TABLET;ORAL
Application: A040604 | Product #002 | TE Code: AB
Applicant: EPIC PHARMA LLC
Approved: Dec 28, 2004 | RLD: No | RS: No | Type: RX